FAERS Safety Report 10890519 (Version 3)
Quarter: 2015Q4

REPORT INFORMATION
  Report Type: Spontaneous
  Country: CA (occurrence: CA)
  Receive Date: 20150305
  Receipt Date: 20151216
  Transmission Date: 20160304
  Serious: Yes (Hospitalization, Other)
  Sender: FDA-Public Use
  Company Number: CA-009507513-1503CAN000951

PATIENT
  Age: 84 Year
  Sex: Female

DRUGS (2)
  1. EZETROL [Suspect]
     Active Substance: EZETIMIBE
     Indication: DIABETES MELLITUS
     Dosage: UNK
     Route: 048
  2. EZETROL [Suspect]
     Active Substance: EZETIMIBE
     Indication: HYPERLIPIDAEMIA

REACTIONS (2)
  - Hip fracture [Recovering/Resolving]
  - Spinal fracture [Unknown]

NARRATIVE: CASE EVENT DATE: 20151017
